FAERS Safety Report 15962110 (Version 1)
Quarter: 2019Q1

REPORT INFORMATION
  Report Type: Spontaneous
  Country: US (occurrence: US)
  Receive Date: 20190214
  Receipt Date: 20190214
  Transmission Date: 20190417
  Serious: No
  Sender: FDA-Public Use
  Company Number: None

PATIENT
  Sex: Female

DRUGS (1)
  1. NATEGLINIDE. [Suspect]
     Active Substance: NATEGLINIDE

REACTIONS (2)
  - Drug ineffective [None]
  - Diarrhoea [None]
